FAERS Safety Report 13162946 (Version 1)
Quarter: 2017Q1

REPORT INFORMATION
  Report Type: Spontaneous
  Country: US (occurrence: US)
  Receive Date: 20170127
  Receipt Date: 20170127
  Transmission Date: 20170428
  Serious: Yes (Other)
  Sender: FDA-Public Use
  Company Number: None

PATIENT
  Age: 5 Year
  Sex: Male
  Weight: 22.5 kg

DRUGS (1)
  1. MONTELEUKAST [Suspect]
     Active Substance: MONTELUKAST SODIUM
     Indication: COUGH
     Route: 048
     Dates: start: 20161019, end: 20170122

REACTIONS (11)
  - Panic attack [None]
  - Tremor [None]
  - Psychomotor hyperactivity [None]
  - Nightmare [None]
  - Hyperhidrosis [None]
  - Vomiting [None]
  - Mental status changes [None]
  - Insomnia [None]
  - Hyperventilation [None]
  - Fear [None]
  - School refusal [None]

NARRATIVE: CASE EVENT DATE: 20170105
